FAERS Safety Report 7783083-0 (Version None)
Quarter: 2011Q3

REPORT INFORMATION
  Report Type: 
  Country: None (occurrence: None)
  Receive Date: 20110926
  Receipt Date: 20110908
  Transmission Date: 20111222
  Serious: Yes (Other)
  Sender: FDA-Public Use
  Company Number: 1000023910

PATIENT
  Age: 48 Year
  Sex: Female

DRUGS (8)
  1. UNSPECIFIED CORTICOID (CORTICOSTEROIDS) (CORTICOSTEROIDS) [Concomitant]
  2. SERETIDE (SALMETEROL XINAFOATE, FLUTICASONE PROPIONATE) (INHALANTE) (S [Concomitant]
  3. RIVOTRIL (CLONAZEPAM) (TABLETS) (CLONAZEPAM) [Concomitant]
  4. ROFLUMILAST (ROFLUMILAST) (ROFLUMILAST) [Suspect]
     Indication: CHRONIC OBSTRUCTIVE PULMONARY DISEASE
     Dosage: 1 DOSAGE FORMS (1 DOSAGE FORMS,1 IN 1 D),ORAL
     Route: 048
     Dates: start: 20110807, end: 20110809
  5. BUPROPION (BUPROPION) (150 MILLIGRAM, TABLETS) (BUPROPION) [Concomitant]
  6. SPIRIVA (TIOTROPIUM BROMIDE) (TIOTROPIUM BROMIDE) [Concomitant]
  7. BEROTEC (FENOTEROL HYDROBROMIDE) (DROPS) (FENOTEROL HYDROBROMDE) [Concomitant]
  8. AVAMYS (FLUTICASONE FUROATE) (PREPARATION FOR ORAL USE(NOS)) (FLUTICAS [Concomitant]

REACTIONS (4)
  - NAUSEA [None]
  - HEPATITIS [None]
  - VOMITING [None]
  - FATIGUE [None]
